FAERS Safety Report 6189374-1 (Version None)
Quarter: 2009Q2

REPORT INFORMATION
  Report Type: 
  Country: None (occurrence: None)
  Receive Date: 20090512
  Receipt Date: 20090430
  Transmission Date: 20091009
  Serious: Yes (Other)
  Sender: FDA-Public Use
  Company Number: OPER20090097

PATIENT
  Age: 30 Year
  Sex: Female

DRUGS (1)
  1. OPANA ER [Suspect]

REACTIONS (2)
  - DRUG ABUSE [None]
  - ENERGY INCREASED [None]
